FAERS Safety Report 20153543 (Version 2)
Quarter: 2021Q4

REPORT INFORMATION
  Report Type: Report from Study
  Country: US (occurrence: US)
  Receive Date: 20211206
  Receipt Date: 20211210
  Transmission Date: 20220303
  Serious: No
  Sender: FDA-Public Use
  Company Number: US-SUNOVION-2021SUN004518

PATIENT
  Age: 45 Year
  Sex: Male

DRUGS (3)
  1. KYNMOBI [Suspect]
     Active Substance: APOMORPHINE HYDROCHLORIDE
     Dosage: 10 MG
     Route: 060
     Dates: start: 20211125
  2. KYNMOBI [Suspect]
     Active Substance: APOMORPHINE HYDROCHLORIDE
     Dosage: 15 MG
     Route: 060
     Dates: start: 20211126
  3. KYNMOBI [Suspect]
     Active Substance: APOMORPHINE HYDROCHLORIDE
     Dosage: 20 MG
     Route: 060
     Dates: start: 20211126

REACTIONS (3)
  - Blood pressure increased [Recovered/Resolved]
  - Malaise [Recovered/Resolved]
  - Somnolence [Unknown]

NARRATIVE: CASE EVENT DATE: 20211125
